FAERS Safety Report 24625505 (Version 1)
Quarter: 2024Q4

REPORT INFORMATION
  Report Type: Spontaneous
  Country: GB (occurrence: GB)
  Receive Date: 20241115
  Receipt Date: 20241115
  Transmission Date: 20250114
  Serious: Yes (Other)
  Sender: GLAXOSMITHKLINE
  Company Number: None

PATIENT

DRUGS (1)
  1. SUMATRIPTAN SUCCINATE [Suspect]
     Active Substance: SUMATRIPTAN SUCCINATE
     Indication: Migraine with aura
     Dosage: UNK
     Route: 065
     Dates: start: 20241106

REACTIONS (4)
  - Head discomfort [Not Recovered/Not Resolved]
  - Limb discomfort [Unknown]
  - Muscle tightness [Unknown]
  - Asthenia [Unknown]

NARRATIVE: CASE EVENT DATE: 20241101
